FAERS Safety Report 5349602-9 (Version None)
Quarter: 2007Q2

REPORT INFORMATION
  Report Type: 
  Country: None (occurrence: None)
  Receive Date: 20070607
  Receipt Date: 20070530
  Transmission Date: 20071010
  Serious: Yes (Other)
  Sender: FDA-Public Use
  Company Number: US-JNJFOC-20070600189

PATIENT
  Age: 73 Year
  Sex: Female
  Weight: 52.16 kg

DRUGS (8)
  1. TYLENOL W/ CODEINE [Suspect]
     Indication: PAIN
     Dosage: SINCE ^YEARS^ AGO
     Route: 048
  2. POTASSIUM CHLORIDE [Concomitant]
     Indication: NUTRITIONAL SUPPORT
     Route: 048
  3. LOVESTATIN [Concomitant]
     Indication: BLOOD CHOLESTEROL INCREASED
     Route: 048
  4. LISINOPRIL [Concomitant]
     Indication: HYPERTENSION
     Route: 048
  5. MENEST [Concomitant]
     Dosage: TAKEN FOR YEARS
     Route: 048
  6. LORAZEPAM [Concomitant]
     Indication: ANXIETY
     Route: 048
  7. MULTIVITAMIN [Concomitant]
     Indication: NUTRITIONAL SUPPORT
     Dosage: TAKEN FOR YEARS
     Route: 048
  8. ACETYLSALICYLIC ACID SRT [Concomitant]
     Route: 065

REACTIONS (2)
  - THERAPEUTIC RESPONSE DECREASED [None]
  - TRANSIENT ISCHAEMIC ATTACK [None]
